FAERS Safety Report 26011545 (Version 1)
Quarter: 2025Q4

REPORT INFORMATION
  Report Type: Report from Study
  Country: CA (occurrence: CA)
  Receive Date: 20251107
  Receipt Date: 20251107
  Transmission Date: 20260118
  Serious: Yes (Other)
  Sender: ABBVIE
  Company Number: CA-ABBVIE-6526980

PATIENT
  Age: 15 Year
  Sex: Female

DRUGS (7)
  1. HUMIRA [Suspect]
     Active Substance: ADALIMUMAB
     Indication: Colitis ulcerative
     Route: 058
  2. STELARA [Suspect]
     Active Substance: USTEKINUMAB
     Indication: Product used for unknown indication
     Route: 065
     Dates: start: 2021, end: 202409
  3. IMURAN [Concomitant]
     Active Substance: AZATHIOPRINE
     Indication: Product used for unknown indication
  4. ENTYVIO [Suspect]
     Active Substance: VEDOLIZUMAB
     Indication: Product used for unknown indication
     Route: 065
  5. CARVEDILOL [Suspect]
     Active Substance: CARVEDILOL
     Indication: Product used for unknown indication
     Route: 065
  6. RIVAROXABAN [Suspect]
     Active Substance: RIVAROXABAN
     Indication: Product used for unknown indication
     Route: 065
  7. REMICADE [Suspect]
     Active Substance: INFLIXIMAB
     Indication: Product used for unknown indication
     Route: 065

REACTIONS (32)
  - Autoimmune hepatitis [Unknown]
  - Nausea [Unknown]
  - Decreased appetite [Unknown]
  - Asthenia [Unknown]
  - Fall [Unknown]
  - Electrolyte imbalance [Unknown]
  - Electrocardiogram QT prolonged [Unknown]
  - Sinusitis [Unknown]
  - Abdominal pain [Recovering/Resolving]
  - Increased tendency to bruise [Unknown]
  - Colon cancer [Unknown]
  - Crohn^s disease [Unknown]
  - Ileal ulcer [Unknown]
  - Colitis [Unknown]
  - Acrochordon [Unknown]
  - Arthralgia [Unknown]
  - Drug hypersensitivity [Unknown]
  - Enteritis [Unknown]
  - Diarrhoea [Not Recovered/Not Resolved]
  - Haemorrhage [Recovered/Resolved]
  - Iron deficiency anaemia [Unknown]
  - Chronic gastritis [Unknown]
  - Dysplasia [Unknown]
  - Varices oesophageal [Unknown]
  - Raynaud^s phenomenon [Unknown]
  - Arthritis [Unknown]
  - Portal hypertension [Unknown]
  - Adrenal insufficiency [Unknown]
  - Fatigue [Not Recovered/Not Resolved]
  - Portal vein thrombosis [Unknown]
  - Drug ineffective [Unknown]
  - Drug ineffective [Unknown]

NARRATIVE: CASE EVENT DATE: 19850101
